FAERS Safety Report 10145265 (Version 1)
Quarter: 2014Q2

REPORT INFORMATION
  Report Type: Spontaneous
  Country: US (occurrence: US)
  Receive Date: 20140501
  Receipt Date: 20140501
  Transmission Date: 20141212
  Serious: No
  Sender: FDA-Public Use
  Company Number: US-BIOGENIDEC-2014BI037405

PATIENT
  Age: 16 Year
  Sex: Male

DRUGS (1)
  1. TECFIDERA [Suspect]
     Indication: MULTIPLE SCLEROSIS
     Route: 048
     Dates: start: 20131226

REACTIONS (3)
  - Off label use [Not Recovered/Not Resolved]
  - Abdominal discomfort [Recovered/Resolved]
  - Multiple sclerosis relapse [Unknown]
